FAERS Safety Report 9260928 (Version 1)
Quarter: 2013Q2

REPORT INFORMATION
  Report Type: Spontaneous
  Country: US (occurrence: US)
  Receive Date: 20130429
  Receipt Date: 20130429
  Transmission Date: 20140414
  Serious: No
  Sender: FDA-Public Use
  Company Number: US-AMGEN-USASP2012042819

PATIENT
  Age: 38 Year
  Sex: Female
  Weight: 104.2 kg

DRUGS (4)
  1. SENSIPAR [Suspect]
     Indication: HYPERPARATHYROIDISM SECONDARY
     Dosage: 30 MG, QD
     Route: 048
     Dates: start: 20120517, end: 20120607
  2. RENVELA [Concomitant]
     Indication: BLOOD PHOSPHORUS INCREASED
     Dosage: 800 MG, UNK
     Route: 048
     Dates: start: 20120517, end: 20120621
  3. SODIUM BICARBONATE [Concomitant]
     Indication: CARBON DIOXIDE DECREASED
     Dosage: 650 MG, BID
     Route: 048
     Dates: start: 20120429, end: 20120730
  4. XANAX [Concomitant]
     Indication: ANXIETY
     Dosage: .25 UNK, QD
     Route: 048
     Dates: start: 20120510, end: 20120621

REACTIONS (3)
  - Blister [Unknown]
  - Rash [Recovered/Resolved]
  - Urticaria [Recovered/Resolved]
